FAERS Safety Report 6264345-5 (Version None)
Quarter: 2009Q3

REPORT INFORMATION
  Report Type: 
  Country: None (occurrence: None)
  Receive Date: 20090710
  Receipt Date: 20090630
  Transmission Date: 20100115
  Serious: Yes (Hospitalization)
  Sender: FDA-Public Use
  Company Number: A0795227A

PATIENT
  Age: 61 Year
  Sex: Female
  Weight: 98.6 kg

DRUGS (8)
  1. AVANDAMET [Suspect]
     Route: 048
     Dates: start: 20060410, end: 20090109
  2. BENICAR [Concomitant]
     Dates: end: 20090101
  3. ATENOLOL [Concomitant]
  4. ALBUTEROL [Concomitant]
  5. ASPIRIN [Concomitant]
  6. GABAPENTIN [Concomitant]
     Dates: end: 20090101
  7. NIASPAN [Concomitant]
  8. ZOCOR [Concomitant]

REACTIONS (1)
  - RENAL FAILURE [None]
